FAERS Safety Report 5153007-3 (Version None)
Quarter: 2006Q4

REPORT INFORMATION
  Report Type: 
  Country: None (occurrence: None)
  Receive Date: 20061117
  Receipt Date: 20061113
  Transmission Date: 20070319
  Serious: Yes (Death, Hospitalization)
  Sender: FDA-Public Use
  Company Number: NL-BAYER-200615760GDS

PATIENT
  Age: 38 Year
  Sex: Female

DRUGS (3)
  1. AVELOX [Suspect]
     Indication: RESPIRATORY TRACT INFECTION
     Dosage: TOTAL DAILY DOSE: 400 MG  UNIT DOSE: 400 MG
     Route: 065
  2. PREDNISONE TAB [Concomitant]
     Indication: UNEVALUABLE EVENT
     Route: 065
  3. SOTALOL HYDROCHLORIDE [Concomitant]
     Indication: ARRHYTHMIA
     Route: 065

REACTIONS (2)
  - ARRHYTHMIA [None]
  - MYOCARDIAL INFARCTION [None]
